FAERS Safety Report 4643497-4 (Version None)
Quarter: 2005Q2

REPORT INFORMATION
  Report Type: 
  Country: None (occurrence: None)
  Receive Date: 20050325
  Receipt Date: 20050202
  Transmission Date: 20051028
  Serious: No
  Sender: FDA-Public Use
  Company Number: IND-AE-05-SAN-006

PATIENT
  Age: 74 Year
  Sex: Female
  Weight: 68.0396 kg

DRUGS (5)
  1. SANCTURA [Suspect]
     Indication: HYPERTONIC BLADDER
     Dosage: 20MG-BID-ORAL
     Route: 048
     Dates: start: 20040914, end: 20041004
  2. PROPRANOLOL [Concomitant]
  3. XANAX [Concomitant]
  4. MECLIZINE [Concomitant]
  5. REMINYL [Concomitant]

REACTIONS (1)
  - URTICARIA [None]
